FAERS Safety Report 21057823 (Version 1)
Quarter: 2022Q3

REPORT INFORMATION
  Report Type: Spontaneous
  Country: US (occurrence: US)
  Receive Date: 20220708
  Receipt Date: 20220708
  Transmission Date: 20221027
  Serious: No
  Sender: FDA-Public Use
  Company Number: US-FreseniusKabi-FK202209247

PATIENT
  Age: 31 Year
  Sex: Female
  Weight: 36 kg

DRUGS (3)
  1. ROCURONIUM BROMIDE [Suspect]
     Active Substance: ROCURONIUM BROMIDE
     Indication: Hypotonia
     Route: 042
     Dates: start: 20220523, end: 20220523
  2. ROCURONIUM BROMIDE [Suspect]
     Active Substance: ROCURONIUM BROMIDE
     Dosage: 40MG (ONCE), 10MG (ONCE), 20MG (ONCE)?DURATION: ASKED BUT UNKNOWN
     Route: 042
     Dates: start: 20220523, end: 20220523
  3. ROCURONIUM BROMIDE [Suspect]
     Active Substance: ROCURONIUM BROMIDE
     Route: 042
     Dates: start: 20220523, end: 20220523

REACTIONS (2)
  - Muscle twitching [Recovered/Resolved]
  - Therapeutic product effect decreased [Recovered/Resolved]

NARRATIVE: CASE EVENT DATE: 20220523
